FAERS Safety Report 5110668-2 (Version None)
Quarter: 2006Q3

REPORT INFORMATION
  Report Type: 
  Country: None (occurrence: None)
  Receive Date: 20060921
  Receipt Date: 20060919
  Transmission Date: 20061208
  Serious: Yes (Hospitalization)
  Sender: FDA-Public Use
  Company Number: US-MERCK-0609USA04245

PATIENT
  Age: 73 Year
  Sex: Female

DRUGS (9)
  1. FOSAMAX [Suspect]
     Indication: OSTEOPOROSIS
     Route: 048
     Dates: start: 20010101
  2. LIPITOR [Concomitant]
     Route: 065
  3. SINGULAIR [Concomitant]
     Route: 065
  4. NEURONTIN [Concomitant]
     Route: 065
  5. SKELAXIN [Concomitant]
     Route: 065
  6. SYNTHROID [Concomitant]
     Route: 065
  7. NAPROXEN [Concomitant]
     Route: 065
  8. INDERAL [Concomitant]
     Route: 065
  9. EFFEXOR [Concomitant]
     Route: 065

REACTIONS (4)
  - BODY HEIGHT DECREASED [None]
  - CARDIAC DISORDER [None]
  - CATARACT [None]
  - DRUG INEFFECTIVE [None]
